FAERS Safety Report 14487607 (Version 1)
Quarter: 2018Q1

REPORT INFORMATION
  Report Type: Spontaneous
  Country: GB (occurrence: GB)
  Receive Date: 20180205
  Receipt Date: 20180205
  Transmission Date: 20180509
  Serious: Yes (Life-Threatening, Hospitalization, Other)
  Sender: FDA-Public Use
  Company Number: GB-009507513-1801GBR014717

PATIENT
  Age: 58 Year
  Sex: Female
  Weight: 63.5 kg

DRUGS (5)
  1. PEMBROLIZUMAB. [Suspect]
     Active Substance: PEMBROLIZUMAB
     Indication: MALIGNANT MELANOMA
     Dosage: 5 DOSES IN LAST FEW MONTHS.
     Route: 042
     Dates: start: 20171016, end: 20180108
  2. IBUPROFEN. [Concomitant]
     Active Substance: IBUPROFEN
  3. OMEPRAZOLE. [Concomitant]
     Active Substance: OMEPRAZOLE
  4. CITALOPRAM HYDROBROMIDE. [Concomitant]
     Active Substance: CITALOPRAM HYDROBROMIDE
  5. ACETAMINOPHEN AND CODEINE [Concomitant]
     Active Substance: ACETAMINOPHEN\CODEINE PHOSPHATE

REACTIONS (9)
  - Malaise [Unknown]
  - Depressed level of consciousness [Unknown]
  - Vomiting [Recovering/Resolving]
  - Diabetic ketoacidosis [Recovering/Resolving]
  - Nausea [Recovering/Resolving]
  - Diarrhoea [Recovering/Resolving]
  - Coma scale abnormal [Unknown]
  - Lethargy [Unknown]
  - Type 1 diabetes mellitus [Recovering/Resolving]

NARRATIVE: CASE EVENT DATE: 20180110
